FAERS Safety Report 10257353 (Version 1)
Quarter: 2014Q2

REPORT INFORMATION
  Report Type: Spontaneous
  Country: US (occurrence: None)
  Receive Date: 20140623
  Receipt Date: 20140623
  Transmission Date: 20141212
  Serious: No
  Sender: FDA-Public Use
  Company Number: None

PATIENT
  Age: 58 Year
  Sex: Female
  Weight: 86.18 kg

DRUGS (2)
  1. FLUTICASONE [Suspect]
     Indication: DRUG INEFFECTIVE
     Dosage: 2 SPRAY EACH NOSTRIL QD INTRANASAL
     Route: 045
  2. FLUTICASONE [Concomitant]

REACTIONS (1)
  - Treatment failure [None]
